FAERS Safety Report 19932398 (Version 1)
Quarter: 2021Q4

REPORT INFORMATION
  Report Type: Spontaneous
  Country: US (occurrence: US)
  Receive Date: 20211007
  Receipt Date: 20211007
  Transmission Date: 20220303
  Serious: Yes (Disabling)
  Sender: FDA-Public Use
  Company Number: None

PATIENT
  Age: 74 Year
  Sex: Male
  Weight: 69.75 kg

DRUGS (7)
  1. LOTRIMIN AF ANTIFUNGAL [Suspect]
     Active Substance: MICONAZOLE NITRATE
     Indication: Fungal skin infection
     Dates: end: 20210717
  2. TRAZODONE [Concomitant]
     Active Substance: TRAZODONE HYDROCHLORIDE
  3. TAMSULOSIN HYDROCHLORID [Concomitant]
  4. AMLODIPINE BESYLATE [Concomitant]
     Active Substance: AMLODIPINE BESYLATE
  5. FISH OIL [Concomitant]
     Active Substance: FISH OIL
  6. HERBALS\TURMERIC [Concomitant]
     Active Substance: HERBALS\TURMERIC
  7. METAMUCIL [Concomitant]
     Active Substance: PLANTAGO SEED

REACTIONS (4)
  - Prostatic specific antigen increased [None]
  - Prostate cancer [None]
  - Inflammation [None]
  - Erythema [None]

NARRATIVE: CASE EVENT DATE: 20210701
